FAERS Safety Report 15518708 (Version 6)
Quarter: 2019Q3

REPORT INFORMATION
  Report Type: Spontaneous
  Country: US (occurrence: US)
  Receive Date: 20181017
  Receipt Date: 20190814
  Transmission Date: 20191004
  Serious: Yes (Hospitalization, Other)
  Sender: FDA-Public Use
  Company Number: US-SA-2018SA287145

PATIENT
  Age: 39 Year
  Sex: Male
  Weight: 80.73 kg

DRUGS (22)
  1. ONDANSETRON [Concomitant]
     Active Substance: ONDANSETRON
     Indication: ANAPHYLACTIC REACTION
  2. FLUCONAZOLE. [Concomitant]
     Active Substance: FLUCONAZOLE
     Dosage: 1 TABLET
     Route: 048
     Dates: start: 20170612
  3. AMOXICILLIN. [Concomitant]
     Active Substance: AMOXICILLIN
     Dosage: 1 DOSE
     Route: 048
     Dates: start: 20160920
  4. CYCLOBENZAPRINE. [Concomitant]
     Active Substance: CYCLOBENZAPRINE
     Dosage: 1 TABLET
     Route: 048
     Dates: start: 20160407
  5. LISINOPRIL. [Concomitant]
     Active Substance: LISINOPRIL
     Dosage: 1 TABLET, QD
     Route: 048
     Dates: start: 20160407
  6. EPINEPHRINE. [Concomitant]
     Active Substance: EPINEPHRINE
     Indication: ANAPHYLACTIC REACTION
     Dosage: 0.3 MG, PRN
     Route: 030
     Dates: start: 20180526
  7. AMLODIPIN/ATORVASTATIN [Concomitant]
     Active Substance: AMLODIPINE BESYLATE\ATORVASTATIN CALCIUM
     Dosage: 1 TABLET
     Route: 048
     Dates: start: 20180104
  8. NORMAL SALINE [Concomitant]
     Active Substance: SODIUM CHLORIDE
     Dosage: 0.9 % AS DIRECTED
     Route: 042
     Dates: start: 20180526
  9. ONDANSETRON [Concomitant]
     Active Substance: ONDANSETRON
     Indication: PREMEDICATION
     Dosage: 4 MG, PRN
     Route: 042
     Dates: start: 20180526
  10. TRAMADOL. [Concomitant]
     Active Substance: TRAMADOL
     Dosage: 1 DOSE
     Route: 048
     Dates: start: 20160419
  11. ACETAMINOPHEN. [Concomitant]
     Active Substance: ACETAMINOPHEN
     Indication: PREMEDICATION
     Dosage: 1000 MG
     Route: 048
     Dates: start: 20180526
  12. STERILE WATER [Concomitant]
     Active Substance: WATER
     Dosage: 1 DOSE  AS DIRECTED
     Route: 042
     Dates: start: 20180526
  13. CLONIDINE. [Concomitant]
     Active Substance: CLONIDINE
     Dosage: 1 TABLET
     Route: 048
     Dates: start: 20160407
  14. FABRAZYME [Suspect]
     Active Substance: AGALSIDASE BETA
     Indication: FABRY^S DISEASE
     Dosage: 90 MG, EVERY 2 WEEKS (5 MG VIAL, 35 MG VIAL)
     Route: 041
     Dates: start: 20150811
  15. DIPHENHYDRAMINE. [Concomitant]
     Active Substance: DIPHENHYDRAMINE
     Indication: PREMEDICATION
     Dosage: 25 MG
     Route: 048
     Dates: start: 20180526
  16. HEPARIN [Concomitant]
     Active Substance: HEPARIN SODIUM
     Dosage: 100 UN/ML AS DIRECTED
     Route: 042
     Dates: start: 20180526
  17. TOPAMAX [Concomitant]
     Active Substance: TOPIRAMATE
     Dosage: 1 DF
     Route: 048
     Dates: start: 20150811
  18. FABRAZYME [Suspect]
     Active Substance: AGALSIDASE BETA
     Indication: CHRONIC KIDNEY DISEASE
  19. SODIUM CHLORIDE. [Concomitant]
     Active Substance: SODIUM CHLORIDE
     Dosage: 0.9 %, AS DIRECTED
     Route: 042
     Dates: start: 20180526
  20. ATIVAN [Concomitant]
     Active Substance: LORAZEPAM
     Dosage: 1 TABLET AS NEEDED
     Route: 048
     Dates: start: 20160419
  21. PHENERGAN [Concomitant]
     Active Substance: PROMETHAZINE HYDROCHLORIDE
     Dosage: 25 MG, PRN
     Route: 048
     Dates: start: 20160407
  22. METOPROLOL. [Concomitant]
     Active Substance: METOPROLOL
     Dosage: 1 TABLET, BID
     Route: 048
     Dates: start: 20160407

REACTIONS (4)
  - Cystitis [Unknown]
  - Colitis [Not Recovered/Not Resolved]
  - Tooth infection [Unknown]
  - Large intestinal obstruction [Not Recovered/Not Resolved]

NARRATIVE: CASE EVENT DATE: 20190701
